FAERS Safety Report 7716433-1 (Version None)
Quarter: 2011Q3

REPORT INFORMATION
  Report Type: 
  Country: None (occurrence: None)
  Receive Date: 20110829
  Receipt Date: 20110817
  Transmission Date: 20111222
  Serious: Yes (Disabling)
  Sender: FDA-Public Use
  Company Number: CA-MERCK-1108USA01519

PATIENT
  Age: 62 Year
  Sex: Female

DRUGS (4)
  1. ZETIA [Suspect]
     Indication: BLOOD CHOLESTEROL INCREASED
     Route: 048
     Dates: start: 20110601, end: 20110101
  2. HYZAAR [Concomitant]
     Indication: HYPERTENSION
     Route: 048
  3. LIPITOR [Suspect]
     Indication: BLOOD CHOLESTEROL INCREASED
     Route: 048
     Dates: start: 20000101, end: 20110601
  4. METFORMIN [Concomitant]
     Indication: GLUCOSE TOLERANCE IMPAIRED
     Route: 065

REACTIONS (5)
  - MYALGIA [None]
  - ARTHRALGIA [None]
  - ABASIA [None]
  - BLOOD CHOLESTEROL INCREASED [None]
  - OEDEMA PERIPHERAL [None]
